FAERS Safety Report 7555539-7 (Version None)
Quarter: 2011Q2

REPORT INFORMATION
  Report Type: 
  Country: None (occurrence: None)
  Receive Date: 20110617
  Receipt Date: 20050608
  Transmission Date: 20111010
  Serious: Yes (Hospitalization)
  Sender: FDA-Public Use
  Company Number: PHHO2005CA09141

PATIENT
  Sex: Female

DRUGS (1)
  1. DIOVAN HCT [Suspect]
     Dosage: 160/12.5 MG
     Route: 048
     Dates: start: 20040101

REACTIONS (2)
  - STAPHYLOCOCCAL INFECTION [None]
  - URINARY TRACT INFECTION [None]
